FAERS Safety Report 7803326-4 (Version None)
Quarter: 2011Q4

REPORT INFORMATION
  Report Type: 
  Country: None (occurrence: None)
  Receive Date: 20111007
  Receipt Date: 20110928
  Transmission Date: 20120403
  Serious: Yes (Other)
  Sender: FDA-Public Use
  Company Number: US-BAYER-2011-092840

PATIENT
  Age: 31 Year
  Sex: Female

DRUGS (1)
  1. ALKA-SELTZER PLUS COLD + COUGH LIQUID GELS [Suspect]
     Dosage: 2 DF, ONCE
     Route: 048
     Dates: start: 20110925

REACTIONS (6)
  - PAINFUL RESPIRATION [None]
  - CHOKING [None]
  - DYSPHONIA [None]
  - OROPHARYNGEAL PAIN [None]
  - MOBILITY DECREASED [None]
  - COUGH [None]
